FAERS Safety Report 4426178-1 (Version None)
Quarter: 2004Q3

REPORT INFORMATION
  Report Type: 
  Country: None (occurrence: None)
  Receive Date: 20040811
  Receipt Date: 20040728
  Transmission Date: 20050211
  Serious: Yes (Hospitalization)
  Sender: FDA-Public Use
  Company Number: 2004-BP-05078BP

PATIENT
  Age: 79 Year
  Sex: Male
  Weight: 100 kg

DRUGS (8)
  1. MIRAPEX [Suspect]
     Indication: RESTLESS LEGS SYNDROME
     Dosage: SEE TEXT 0.125 MG O
     Dates: start: 20040422, end: 20040622
  2. ZOLOFT [Concomitant]
  3. ZOCOR [Concomitant]
  4. FLOMAX [Concomitant]
  5. LOPRESSOR [Concomitant]
  6. AMBIEN [Concomitant]
  7. PRILOSEC [Concomitant]
  8. EXTRA STRENGTH TYLENOL [Concomitant]

REACTIONS (7)
  - ACUTE MYELOID LEUKAEMIA [None]
  - CARDIAC FAILURE CONGESTIVE [None]
  - CARDIAC FAILURE HIGH OUTPUT [None]
  - CONDITION AGGRAVATED [None]
  - DYSPNOEA [None]
  - LYMPHOMA [None]
  - PANCYTOPENIA [None]
